FAERS Safety Report 22071380 (Version 1)
Quarter: 2023Q1

REPORT INFORMATION
  Report Type: Spontaneous
  Country: US (occurrence: None)
  Receive Date: 20230307
  Receipt Date: 20230307
  Transmission Date: 20230418
  Serious: Yes (Disabling, Other)
  Sender: FDA-Public Use
  Company Number: None

PATIENT
  Age: 73 Year
  Sex: Female
  Weight: 52.2 kg

DRUGS (2)
  1. PAXLOVID [Suspect]
     Active Substance: NIRMATRELVIR\RITONAVIR
     Indication: COVID-19
     Dosage: FREQUENCY : TWICE A DAY;?
     Route: 048
     Dates: start: 20220918, end: 20220923
  2. Hydrochlorothiazide 12.5 once daily [Concomitant]

REACTIONS (5)
  - COVID-19 [None]
  - Anosmia [None]
  - Ageusia [None]
  - Burning mouth syndrome [None]
  - Quality of life decreased [None]

NARRATIVE: CASE EVENT DATE: 20220928
